FAERS Safety Report 5768741-1 (Version None)
Quarter: 2008Q2

REPORT INFORMATION
  Report Type: 
  Country: None (occurrence: None)
  Receive Date: 20080612
  Receipt Date: 20071206
  Transmission Date: 20081010
  Serious: No
  Sender: FDA-Public Use
  Company Number: US-BOEHRINGER INGELHEIM GMBH, GERMANY-2007-BP-02347BP

PATIENT
  Sex: Male

DRUGS (21)
  1. MIRAPEX [Suspect]
     Indication: PARKINSON'S DISEASE
     Dates: start: 19980910, end: 20050630
  2. AMANTADINE HCL [Concomitant]
     Indication: PARKINSON'S DISEASE
     Dates: start: 19970709
  3. CARBIDOPA AND LEVODOPA [Concomitant]
     Indication: PARKINSON'S DISEASE
     Dates: start: 19990915
  4. CYCLOBENZAPRINE HCL [Concomitant]
     Dates: start: 20050808
  5. CYCLOGYL DROPTAINES [Concomitant]
     Dates: start: 19970915
  6. ENDOCET [Concomitant]
     Dates: start: 20050723, end: 20050728
  7. FLUOXETINE HCL [Concomitant]
     Dates: start: 20040319
  8. HYTRIN [Concomitant]
     Indication: PROSTATIC DISORDER
     Dates: start: 19991104
  9. LORAZEPAM [Concomitant]
     Dates: start: 19980226
  10. MOTRIN [Concomitant]
     Indication: NEURALGIA
     Dates: start: 19970402
  11. NAPROXEN [Concomitant]
     Dates: start: 20010918
  12. PENICILLIN V POTASSIUM [Concomitant]
     Dates: start: 20061201
  13. PRED FORTE 1% OPTH DROPS [Concomitant]
     Dates: start: 19970915
  14. REQUIP [Concomitant]
     Indication: PARKINSON'S DISEASE
     Dates: start: 20050630
  15. SODIUM SULAMYD [Concomitant]
     Dates: start: 19970912
  16. SULFAMETHOXAZOLE AND TRIMETHOPRIM [Concomitant]
     Dates: start: 20031104, end: 20031229
  17. TERAZOSIN HCL [Concomitant]
     Dates: start: 20000304
  18. ZOLOFT [Concomitant]
     Dates: start: 20070430
  19. ARTANE [Concomitant]
     Indication: PARKINSON'S DISEASE
  20. SINEMET LEVADOPA [Concomitant]
     Indication: PARKINSON'S DISEASE
  21. ATIVAN [Concomitant]
     Indication: SLEEP DISORDER

REACTIONS (7)
  - DEPRESSION [None]
  - EMOTIONAL DISTRESS [None]
  - INJURY [None]
  - OBSESSIVE-COMPULSIVE DISORDER [None]
  - PATHOLOGICAL GAMBLING [None]
  - PSYCHOTIC DISORDER [None]
  - SUICIDAL IDEATION [None]
